FAERS Safety Report 19980254 (Version 1)
Quarter: 2021Q4

REPORT INFORMATION
  Report Type: Spontaneous
  Country: US (occurrence: US)
  Receive Date: 20211021
  Receipt Date: 20211021
  Transmission Date: 20220304
  Serious: Yes (Hospitalization)
  Sender: FDA-Public Use
  Company Number: US-MYLANLABS-2021M1074482

PATIENT
  Age: 48 Year
  Sex: Male

DRUGS (4)
  1. PREDNISONE [Suspect]
     Active Substance: PREDNISONE
     Indication: Organising pneumonia
     Dosage: UNK
     Route: 065
  2. AMPHOTERICIN B [Concomitant]
     Active Substance: AMPHOTERICIN B
     Indication: Coccidioidomycosis
     Dosage: UNK
     Route: 042
  3. AMPHOTERICIN B [Concomitant]
     Active Substance: AMPHOTERICIN B
     Indication: Coccidioidomycosis
     Dosage: UNK
     Route: 034
  4. FLUCONAZOLE [Concomitant]
     Active Substance: FLUCONAZOLE
     Indication: Coccidioidomycosis
     Dosage: UNK
     Route: 065

REACTIONS (4)
  - Coccidioidomycosis [Recovered/Resolved]
  - Diabetes mellitus [Recovering/Resolving]
  - Pneumothorax [Recovered/Resolved]
  - Pneumonia [Recovered/Resolved]
